FAERS Safety Report 4626118-6 (Version None)
Quarter: 2005Q1

REPORT INFORMATION
  Report Type: 
  Country: None (occurrence: None)
  Receive Date: 20050330
  Receipt Date: 20050317
  Transmission Date: 20050727
  Serious: Yes (Hospitalization, Other)
  Sender: FDA-Public Use
  Company Number: 2005046977

PATIENT
  Sex: Female
  Weight: 51.2565 kg

DRUGS (3)
  1. DETROL LA [Suspect]
     Indication: HYPERTONIC BLADDER
     Dosage: 4 MG (4 MG, 1 IN 1 D), ORAL
     Route: 048
  2. VENLAFAXINE HCL [Concomitant]
  3. GABAPENTIN [Concomitant]

REACTIONS (4)
  - BODY HEIGHT DECREASED [None]
  - DRY MOUTH [None]
  - FALL [None]
  - JOINT DISLOCATION [None]
